FAERS Safety Report 4646709-6 (Version None)
Quarter: 2005Q2

REPORT INFORMATION
  Report Type: 
  Country: None (occurrence: None)
  Receive Date: 20050427
  Receipt Date: 20050423
  Transmission Date: 20051028
  Serious: Yes (Other)
  Sender: FDA-Public Use
  Company Number: CA-GLAXOSMITHKLINE-A0555637A

PATIENT
  Sex: Male

DRUGS (3)
  1. TRIZIVIR [Suspect]
     Indication: DRUG USE FOR UNKNOWN INDICATION
     Route: 048
  2. KALETRA [Suspect]
     Indication: DRUG USE FOR UNKNOWN INDICATION
     Route: 048
  3. ROBAXACET [Concomitant]
     Route: 065

REACTIONS (4)
  - DRUG INTERACTION [None]
  - HEPATOTOXICITY [None]
  - MUSCLE SPASMS [None]
  - NEUTROPENIA [None]
